FAERS Safety Report 16570164 (Version 1)
Quarter: 2019Q3

REPORT INFORMATION
  Report Type: Spontaneous
  Country: DE (occurrence: DE)
  Receive Date: 20190715
  Receipt Date: 20190715
  Transmission Date: 20191004
  Serious: Yes (Hospitalization)
  Sender: FDA-Public Use
  Company Number: DE-TEVA-2019-DE-1076069

PATIENT
  Age: 40 Year
  Sex: Female
  Weight: 56 kg

DRUGS (14)
  1. AFLIBERCEPT [Suspect]
     Active Substance: AFLIBERCEPT
     Dosage: 4 MG / KG BODY WEIGHT, ACCORDING TO SCHEZULETZT AM10.11.2017MA, SOLUTION FOR INJECTION / INFUSION
     Route: 042
  2. DEXAMETHASON [Concomitant]
     Active Substance: DEXAMETHASONE
     Dosage: 8 MG, ACCORDING TO THE SCHEME, TABLETS
     Route: 048
  3. VITIS COMP. [Concomitant]
     Dosage: 20 | 40 | 20 | 40 MG, 1-1-1-0, TABLETS
     Route: 048
  4. CHRISTROSE [Concomitant]
     Dosage: NK NK, NK, AMPULLEN
     Route: 048
  5. MISTEL [Concomitant]
     Dosage: 0.2 MG, 1-1-1-0, TROPFEN
     Route: 048
  6. ESCITALOPRAM [Concomitant]
     Active Substance: ESCITALOPRAM OXALATE
     Dosage: 20 MG, 1-0-0-0, TABLETS
     Route: 048
  7. NEUPOGEN 48MIO.E. [Concomitant]
     Dosage: 48 MILLION I.U., AFTER LABORATORY, INJECTION / INFUSION SOLUTION
     Route: 042
  8. HALOPERIDOL. [Concomitant]
     Active Substance: HALOPERIDOL
     Dosage: 3 GTT, IF NECESSARY, DROPS
     Route: 048
  9. CALCIUM LEVOFOLINATE [Suspect]
     Active Substance: LEVOLEUCOVORIN CALCIUM
     Dosage: 200 MG / M2, MOST RECENTLY 10.11.2017, SOLUTION FOR INJECTION / INFUSION
     Route: 042
  10. SANCUSO 3,1MG/24 STUNDEN [Concomitant]
     Dosage: 3.1 MG, OVER 24 H, TRANSDERMAL PATCH
     Route: 062
  11. FLUOROURACIL. [Suspect]
     Active Substance: FLUOROURACIL
     Dosage: 2800 MG / M2, MOST RECENTLY 10.11.2017, SOLUTION FOR INJECTION / INFUSION
     Route: 042
  12. OXALIPLATIN. [Suspect]
     Active Substance: OXALIPLATIN
     Dosage: 50 MG / M2, MOST RECENTLY 10.11.2017, SOLUTION FOR INJECTION / INFUSION
     Route: 042
  13. ONDANSETRON [Concomitant]
     Active Substance: ONDANSETRON
     Dosage: 8 MG, ACCORDING TO THE SCHEME, TABLETS
     Route: 048
  14. LOPERAMID [Concomitant]
     Active Substance: LOPERAMIDE
     Dosage: 2 MG, AT BEDARD, TABLETS
     Route: 048

REACTIONS (6)
  - General physical health deterioration [Unknown]
  - Abdominal pain lower [Unknown]
  - Pyrexia [Unknown]
  - Abdominal pain upper [Unknown]
  - Headache [Unknown]
  - Fatigue [Unknown]
